FAERS Safety Report 5165521-5 (Version None)
Quarter: 2006Q4

REPORT INFORMATION
  Report Type: 
  Country: None (occurrence: None)
  Receive Date: 20061128
  Receipt Date: 20061122
  Transmission Date: 20070319
  Serious: Yes (Death, Hospitalization)
  Sender: FDA-Public Use
  Company Number: TCI2006A01488

PATIENT
  Age: 85 Year
  Sex: Male

DRUGS (7)
  1. LEUPROLIDE ACETATE [Suspect]
     Indication: PROSTATE CANCER
     Dosage: 3.75 MG (3.75 MG, 1 IN 28 D) SUBCUTANEOUS
     Route: 058
     Dates: start: 20060123, end: 20060220
  2. CASODEX [Suspect]
     Indication: PROSTATE CANCER
     Dosage: 80 MG (80 MG, 1 IN 1 D) PER ORAL
     Route: 048
     Dates: start: 20051221, end: 20060315
  3. RESTREAM                (TAMSULOSIN HYDROCHLORIDE) [Concomitant]
  4. EVIPROSTAT                 (EVIPROSTAT) [Concomitant]
  5. ALESION               (EPINASTINE HYDROCHLORIDE) [Concomitant]
  6. ZANTAC [Concomitant]
  7. LAXOBERON          (SODIUM PICOSULFATE) [Concomitant]

REACTIONS (4)
  - HAEMOPTYSIS [None]
  - INTERSTITIAL LUNG DISEASE [None]
  - NO THERAPEUTIC RESPONSE [None]
  - PLEURAL EFFUSION [None]
